FAERS Safety Report 8399342 (Version 2)
Quarter: 2013Q2

REPORT INFORMATION
  Report Type: Spontaneous
  Country: US (occurrence: None)
  Receive Date: 20111227
  Receipt Date: 20120426
  Transmission Date: 20140414
  Serious: Yes (Other)
  Sender: FDA-Public Use
  Company Number: PHEH2011US010259

PATIENT
  Age: 49 Year
  Sex: Female

DRUGS (3)
  1. GILENYA [Suspect]
     Indication: MULTIPLE SCLEROSIS
     Dosage: 0.5 MG, QD, ORAL
     Route: 048
     Dates: start: 20111122
  2. MARIJUANA (CANNABIS SATIVA) (CANNABIS SATIVA) [Suspect]
  3. LIDODERM (LIDOCAINE) [Concomitant]

REACTIONS (17)
  - RENAL PAIN [None]
  - BACK PAIN [None]
  - Pain [None]
  - Apathy [None]
  - Muscular weakness [None]
  - Muscle spasticity [None]
  - Fatigue [None]
  - Sensation of heaviness [None]
  - Dysaesthesia [None]
  - Fall [None]
  - Muscle tightness [None]
  - Paraesthesia [None]
  - Infection [None]
  - Dizziness [None]
  - Headache [None]
  - Dehydration [None]
  - Malaise [None]
